FAERS Safety Report 8024961-7 (Version None)
Quarter: 2012Q1

REPORT INFORMATION
  Report Type: 
  Country: None (occurrence: None)
  Receive Date: 20120105
  Receipt Date: 20120103
  Transmission Date: 20120608
  Serious: Yes (Life-Threatening, Other)
  Sender: FDA-Public Use
  Company Number: PHHY2011BR85529

PATIENT
  Sex: Male

DRUGS (9)
  1. ATENOLOL [Suspect]
     Dosage: 1 DF IN THE MORNING
  2. APRESOLINE [Suspect]
     Dosage: 1 TABLET  IN THE MORNING AND 1 TABLET AT NIGHT
  3. APRESOLINE [Suspect]
     Dosage: 50 MG, HALF TABLET
  4. INDAPEN [Concomitant]
     Indication: DIURETIC THERAPY
     Dosage: 1 DF, DAILY
     Dates: start: 20070101
  5. SIMVASTATIN [Concomitant]
     Dosage: 1 DF, DAILY AT NIGHT
     Dates: start: 20070101
  6. APRESOLINE [Suspect]
     Dosage: 1 DF IN THE NIGHT
  7. ASPIRIN [Concomitant]
     Dosage: 1 DF, DAILY DURING LUNCH
     Dates: start: 20070101
  8. LOSARTAN POTASSIUM [Suspect]
     Dosage: 1 DF IN THE MORNING
  9. ATENOLOL [Suspect]
     Dosage: 1 DF IN THE AFTERNOON

REACTIONS (4)
  - FEAR [None]
  - WRONG TECHNIQUE IN DRUG USAGE PROCESS [None]
  - FEELING ABNORMAL [None]
  - BLOOD PRESSURE INCREASED [None]
